FAERS Safety Report 9649477 (Version 1)
Quarter: 2013Q4

REPORT INFORMATION
  Report Type: Report from Study
  Country: US (occurrence: US)
  Receive Date: 20131028
  Receipt Date: 20131028
  Transmission Date: 20140711
  Serious: Yes (Hospitalization)
  Sender: FDA-Public Use
  Company Number: US-SAVIENT-2013S1000109

PATIENT
  Age: 77 Year
  Sex: Female
  Weight: 51.62 kg

DRUGS (16)
  1. KRYSTEXXA [Suspect]
     Indication: GOUT
     Dosage: 250 ML IN 0.45%NACL INFUSED
     Route: 042
     Dates: start: 20130911, end: 20130911
  2. LEVOTHYROXINE [Concomitant]
     Indication: HYPERTHYROIDISM
     Route: 048
     Dates: start: 19730101
  3. POTASSIUM CHLORIDE [Concomitant]
     Indication: PRODUCT USED FOR UNKNOWN INDICATION
     Route: 048
     Dates: start: 20110101
  4. ROPINIROLE [Concomitant]
     Indication: PRODUCT USED FOR UNKNOWN INDICATION
     Route: 048
     Dates: start: 20120101
  5. ROSUVASTATIN [Concomitant]
     Indication: CORONARY ARTERY DISEASE
     Route: 048
     Dates: start: 20130701
  6. SUCRALFATE [Concomitant]
     Indication: ABDOMINAL DISCOMFORT
     Route: 048
     Dates: start: 20110101, end: 20120101
  7. ACETAMINOPHEN [Concomitant]
     Indication: PAIN
     Route: 048
     Dates: start: 20080101
  8. CALCIUM CARBONATE/VITAMIN D3 [Concomitant]
     Indication: OSTEOPOROSIS
     Route: 048
     Dates: start: 20130701
  9. COLCRYS [Concomitant]
     Indication: GOUT
     Route: 048
     Dates: start: 20110101
  10. DICLOFENAC SODIUM [Concomitant]
     Indication: PAIN
     Route: 061
     Dates: start: 20130701, end: 20130701
  11. FELODIPINE [Concomitant]
     Indication: HYPERTENSION
     Route: 048
     Dates: start: 20130701
  12. FUROSEMIDE [Concomitant]
     Indication: HYPERTENSION
     Route: 048
     Dates: start: 20080101
  13. IBUPROFEN [Concomitant]
     Indication: PAIN
     Route: 047
     Dates: start: 20130101
  14. FEXOFENADINE [Concomitant]
     Indication: ALLERGY PROPHYLAXIS
     Route: 048
     Dates: start: 20130910
  15. FEXOFENADINE [Concomitant]
     Indication: ALLERGY PROPHYLAXIS
     Route: 048
     Dates: start: 20130911
  16. HYDROCORTISONE [Concomitant]
     Indication: ALLERGY PROPHYLAXIS
     Route: 042
     Dates: start: 20130911, end: 20130911

REACTIONS (1)
  - Pain [Recovered/Resolved]
